FAERS Safety Report 6886179 (Version 1)
Quarter: 2020Q3

REPORT INFORMATION
  Report Type: Spontaneous
  Country: DE (occurrence: DE)
  Receive Date: 20090119
  Receipt Date: 20090119
  Transmission Date: 20201105
  Serious: Yes (Hospitalization)
  Sender: FDA-Public Use
  Company Number: DE-ROCHE-606723

PATIENT
  Age: 45 Year
  Sex: Female

DRUGS (1)
  1. IBANDRONIC ACID. [Suspect]
     Active Substance: IBANDRONIC ACID
     Indication: PRODUCT USED FOR UNKNOWN INDICATION
     Route: 048
     Dates: start: 200806, end: 20090102

REACTIONS (2)
  - Fall [Unknown]
  - Skull fracture [Unknown]

NARRATIVE: CASE EVENT DATE: 20090102
